FAERS Safety Report 22693375 (Version 2)
Quarter: 2023Q4

REPORT INFORMATION
  Report Type: Spontaneous
  Country: BW (occurrence: BW)
  Receive Date: 20230711
  Receipt Date: 20231107
  Transmission Date: 20240110
  Serious: Yes (Other)
  Sender: FDA-Public Use
  Company Number: BW-GILEAD-2023-0635277

PATIENT
  Age: 49 Year
  Sex: Female

DRUGS (3)
  1. VIREAD [Suspect]
     Active Substance: TENOFOVIR DISOPROXIL FUMARATE
     Indication: HIV infection
     Route: 065
  2. DOLUTEGRAVIR\LAMIVUDINE\TENOFOVIR DISOPROXIL FUMARATE [Suspect]
     Active Substance: DOLUTEGRAVIR\LAMIVUDINE\TENOFOVIR DISOPROXIL FUMARATE
     Indication: HIV infection
     Route: 065
  3. ABACAVIR [Concomitant]
     Active Substance: ABACAVIR

REACTIONS (4)
  - Nephropathy toxic [Unknown]
  - Nephrogenic diabetes insipidus [Unknown]
  - Acute kidney injury [Unknown]
  - Fanconi syndrome acquired [Unknown]
